FAERS Safety Report 24599164 (Version 1)
Quarter: 2024Q4

REPORT INFORMATION
  Report Type: Spontaneous
  Country: US (occurrence: US)
  Receive Date: 20241110
  Receipt Date: 20241110
  Transmission Date: 20250114
  Serious: No
  Sender: SANOFI AVENTIS
  Company Number: US-SA-2024SA317740

PATIENT
  Age: 65 Year

DRUGS (1)
  1. LOVENOX [Suspect]
     Active Substance: ENOXAPARIN SODIUM
     Indication: Peripheral T-cell lymphoma unspecified
     Dosage: 100 MG, BID; PRE FILLED PEN
     Route: 058

REACTIONS (1)
  - Off label use [Unknown]
